FAERS Safety Report 20310658 (Version 1)
Quarter: 2022Q1

REPORT INFORMATION
  Report Type: Spontaneous
  Country: US (occurrence: None)
  Receive Date: 20220107
  Receipt Date: 20220107
  Transmission Date: 20220423
  Serious: Yes (Hospitalization)
  Sender: FDA-Public Use
  Company Number: None

PATIENT
  Age: 57 Year
  Sex: Female

DRUGS (23)
  1. BACTRIM DS [Suspect]
     Active Substance: SULFAMETHOXAZOLE\TRIMETHOPRIM
  2. WELLBUTRIN [Suspect]
     Active Substance: BUPROPION HYDROCHLORIDE
  3. ALBUTEROL SULFATE [Concomitant]
     Active Substance: ALBUTEROL SULFATE
  4. ANORO ELLIPTA [Concomitant]
     Active Substance: UMECLIDINIUM BROMIDE\VILANTEROL TRIFENATATE
  5. BECONASE AQ [Concomitant]
     Active Substance: BECLOMETHASONE DIPROPIONATE MONOHYDRATE
  6. BENZONATATE [Concomitant]
     Active Substance: BENZONATATE
  7. BIKTARVY [Concomitant]
     Active Substance: BICTEGRAVIR SODIUM\EMTRICITABINE\TENOFOVIR ALAFENAMIDE FUMARATE
  8. MINERALS\VITAMINS [Concomitant]
     Active Substance: MINERALS\VITAMINS
  9. CYCLOBENZAPRINE [Concomitant]
     Active Substance: CYCLOBENZAPRINE
  10. ESTRADIOL [Concomitant]
     Active Substance: ESTRADIOL
  11. FOLIC ACID [Concomitant]
     Active Substance: FOLIC ACID
  12. INCRUSE ELLIPTA [Concomitant]
     Active Substance: UMECLIDINIUM BROMIDE
  13. LIDOCAINE [Concomitant]
     Active Substance: LIDOCAINE
  14. LORATADINE [Concomitant]
     Active Substance: LORATADINE
  15. MELOXICAM [Concomitant]
     Active Substance: MELOXICAM
  16. NICOTINE TRANSDERMAL SYSTEM [Concomitant]
     Active Substance: NICOTINE
  17. OMEPRAZOLE [Concomitant]
     Active Substance: OMEPRAZOLE
  18. OXYCODONE [Concomitant]
     Active Substance: OXYCODONE
  19. PREGABALIN [Concomitant]
     Active Substance: PREGABALIN
  20. PREZCOBIX [Concomitant]
     Active Substance: COBICISTAT\DARUNAVIR ETHANOLATE
  21. SPIRONOLACTONE [Concomitant]
     Active Substance: SPIRONOLACTONE
  22. THIAMINE [Concomitant]
     Active Substance: THIAMINE
  23. UREA [Concomitant]
     Active Substance: UREA

REACTIONS (6)
  - Asthenia [None]
  - Urinary retention [None]
  - Hyperkalaemia [None]
  - Tremor [None]
  - Muscle twitching [None]
  - Dysarthria [None]
